FAERS Safety Report 19957129 (Version 1)
Quarter: 2021Q4

REPORT INFORMATION
  Report Type: Spontaneous
  Country: US (occurrence: US)
  Receive Date: 20211014
  Receipt Date: 20211014
  Transmission Date: 20220304
  Serious: No
  Sender: FDA-Public Use
  Company Number: US-BAYER-2021A225794

PATIENT
  Sex: Female

DRUGS (2)
  1. MIRENA [Suspect]
     Active Substance: LEVONORGESTREL
     Indication: Contraception
     Dosage: 20 ?G, CONT
     Route: 015
     Dates: start: 201603
  2. MIRENA [Suspect]
     Active Substance: LEVONORGESTREL
     Indication: Heavy menstrual bleeding

REACTIONS (1)
  - Hypomenorrhoea [None]

NARRATIVE: CASE EVENT DATE: 20210301
